FAERS Safety Report 7915171-X (Version None)
Quarter: 2011Q4

REPORT INFORMATION
  Report Type: 
  Country: None (occurrence: None)
  Receive Date: 20111115
  Receipt Date: 20111110
  Transmission Date: 20120403
  Serious: Yes (Hospitalization)
  Sender: FDA-Public Use
  Company Number: US-SANOFI-AVENTIS-2011SA074483

PATIENT
  Sex: Female

DRUGS (1)
  1. APIDRA [Suspect]
     Dosage: 10 -20 UNITS 3 TO 4 TIMES A DAY
     Route: 058
     Dates: start: 20110701

REACTIONS (1)
  - DIABETIC KETOACIDOSIS [None]
